FAERS Safety Report 22101759 (Version 1)
Quarter: 2023Q1

REPORT INFORMATION
  Report Type: Other
  Country: GB (occurrence: GB)
  Receive Date: 20230316
  Receipt Date: 20230316
  Transmission Date: 20230418
  Serious: Yes (Other)
  Sender: FDA-Public Use
  Company Number: GB-CELLTRION INC.-2023GB005301

PATIENT

DRUGS (11)
  1. RITUXIMAB [Suspect]
     Active Substance: RITUXIMAB
     Indication: Diffuse large B-cell lymphoma
     Dosage: FIRST LINE SYSTEMIC TREATMENT WITH R-CODOX-M/R-IVAC (X2 OF EACH)
     Dates: start: 20220609, end: 20220906
  2. RITUXIMAB [Suspect]
     Active Substance: RITUXIMAB
     Dosage: SECOND LINE SYSTEMIC TREATMENT WITH RDHAP
     Dates: start: 20221020, end: 20221120
  3. RITUXIMAB [Suspect]
     Active Substance: RITUXIMAB
     Dosage: SECOND LINE SYSTEMIC TREATMENT WITH RDHAP
     Dates: start: 20221020, end: 20221120
  4. RITUXIMAB [Suspect]
     Active Substance: RITUXIMAB
     Dosage: THIRD LINE SYSTEMIC TREATMENT WITH POLA-BR (1 CYCLE BRIDGING TO CAR-T)
     Dates: start: 20221128, end: 20221219
  5. RITUXIMAB [Suspect]
     Active Substance: RITUXIMAB
     Dosage: THIRD LINE SYSTEMIC TREATMENT WITH POLA-BR (1 CYCLE BRIDGING TO CAR-T)
     Dates: start: 20221128, end: 20221219
  6. CISPLATIN [Suspect]
     Active Substance: CISPLATIN
     Indication: Diffuse large B-cell lymphoma
     Dosage: SECOND LINE SYSTEMIC TREATMENT WITH RDHAP
     Dates: start: 20221020, end: 20221120
  7. DEXAMETHASONE [Suspect]
     Active Substance: DEXAMETHASONE
     Indication: Diffuse large B-cell lymphoma
     Dosage: SECOND LINE SYSTEMIC TREATMENT WITH RDHAP
     Dates: start: 20221020, end: 20221120
  8. CYTARABINE [Suspect]
     Active Substance: CYTARABINE
     Indication: Diffuse large B-cell lymphoma
     Dosage: SECOND LINE SYSTEMIC TREATMENT WITH RDHAP; HIGH DOSE CYTARABINE
     Dates: start: 20221020, end: 20221120
  9. GEMCITABINE [Suspect]
     Active Substance: GEMCITABINE
     Indication: Diffuse large B-cell lymphoma
     Dosage: UNK
     Dates: start: 20221020, end: 20221120
  10. BENDAMUSTINE [Suspect]
     Active Substance: BENDAMUSTINE
     Indication: Diffuse large B-cell lymphoma
     Dosage: THIRD LINE SYSTEMIC TREATMENT WITH POLA-BR (1 CYCLE BRIDGING TO CAR-T)
     Dates: start: 20221128, end: 20221219
  11. POLATUZUMAB VEDOTIN [Suspect]
     Active Substance: POLATUZUMAB VEDOTIN
     Indication: Diffuse large B-cell lymphoma
     Dosage: THIRD LINE SYSTEMIC TREATMENT WITH POLA-BR (1 CYCLE BRIDGING TO CAR-T)
     Dates: start: 20221128, end: 20221219

REACTIONS (3)
  - Diffuse large B-cell lymphoma [Unknown]
  - Disease progression [Unknown]
  - Product use issue [Unknown]
